APPROVED DRUG PRODUCT: ACETYLCYSTEINE
Active Ingredient: ACETYLCYSTEINE
Strength: 6GM/30ML (200MG/ML)
Dosage Form/Route: INJECTABLE;INTRAVENOUS
Application: A213693 | Product #001 | TE Code: AP
Applicant: GLENMARK PHARMACEUTICALS INC USA
Approved: Feb 3, 2022 | RLD: No | RS: No | Type: RX